FAERS Safety Report 20500207 (Version 19)
Quarter: 2025Q2

REPORT INFORMATION
  Report Type: Spontaneous
  Country: GB (occurrence: GB)
  Receive Date: 20220222
  Receipt Date: 20250522
  Transmission Date: 20250717
  Serious: Yes (Other)
  Sender: MYLAN
  Company Number: GB-MYLANLABS-2022M1003724

PATIENT
  Age: 58 Year
  Sex: Male

DRUGS (1)
  1. CLOZARIL [Interacting]
     Active Substance: CLOZAPINE
     Indication: Schizophrenia

REACTIONS (7)
  - Thrombocytopenia [Not Recovered/Not Resolved]
  - Eosinophilia [Recovering/Resolving]
  - Differential white blood cell count abnormal [Recovering/Resolving]
  - Antipsychotic drug level decreased [Unknown]
  - Full blood count abnormal [Unknown]
  - Treatment noncompliance [Unknown]
  - Drug interaction [Unknown]

NARRATIVE: CASE EVENT DATE: 20220113
